FAERS Safety Report 5415596-0 (Version None)
Quarter: 2007Q3

REPORT INFORMATION
  Report Type: 
  Country: None (occurrence: None)
  Receive Date: 20070815
  Receipt Date: 20070803
  Transmission Date: 20080115
  Serious: Yes (Other)
  Sender: FDA-Public Use
  Company Number: CH-ROCHE-510459

PATIENT
  Age: 51 Year
  Sex: Female

DRUGS (1)
  1. BONIVA [Suspect]
     Indication: OSTEOPOROSIS
     Dosage: FORM REPORTED: COATED TABLETS, FILM
     Route: 048
     Dates: start: 20070529

REACTIONS (3)
  - DIARRHOEA [None]
  - GASTROENTERITIS [None]
  - VOMITING [None]
